FAERS Safety Report 8015406-1 (Version None)
Quarter: 2011Q4

REPORT INFORMATION
  Report Type: 
  Country: None (occurrence: None)
  Receive Date: 20111230
  Receipt Date: 20111221
  Transmission Date: 20120403
  Serious: Yes (Other)
  Sender: FDA-Public Use
  Company Number: US-BRISTOL-MYERS SQUIBB COMPANY-16309007

PATIENT
  Age: 51 Year
  Sex: Male
  Weight: 122 kg

DRUGS (7)
  1. FENOFIBRATE [Concomitant]
  2. PRAVASTATIN [Concomitant]
  3. LORAZEPAM [Concomitant]
  4. BUPROPION HCL [Concomitant]
  5. MIRTAZAPINE [Concomitant]
  6. HYDROCHLOROTHIAZIDE [Concomitant]
  7. AVAPRO [Suspect]
     Indication: CARDIAC DISORDER
     Dosage: MORE THAN 2 YEARS AGO,CUTTING THE PILLS IN HALF,SAMPLES

REACTIONS (4)
  - PYREXIA [None]
  - URINARY TRACT DISORDER [None]
  - SUNBURN [None]
  - FEELING ABNORMAL [None]
